FAERS Safety Report 23735797 (Version 4)
Quarter: 2024Q3

REPORT INFORMATION
  Report Type: Spontaneous
  Country: JP (occurrence: JP)
  Receive Date: 20240412
  Receipt Date: 20240725
  Transmission Date: 20241017
  Serious: Yes (Other)
  Sender: UCB
  Company Number: JP-UCBJ-CD202403056UCBPHAPROD

PATIENT
  Age: 5 Year
  Sex: Female
  Weight: 11.9 kg

DRUGS (9)
  1. LEVETIRACETAM [Suspect]
     Active Substance: LEVETIRACETAM
     Indication: Severe myoclonic epilepsy of infancy
     Dosage: 250 MILLIGRAM, PER DAY
     Route: 048
     Dates: end: 20240303
  2. LEVETIRACETAM [Suspect]
     Active Substance: LEVETIRACETAM
     Indication: Off label use
  3. FINTEPLA [Concomitant]
     Active Substance: FENFLURAMINE
     Indication: Product used for unknown indication
     Dosage: UNK
     Dates: start: 20230518
  4. FINTEPLA [Concomitant]
     Active Substance: FENFLURAMINE
     Dosage: 0.35 MG/KG
  5. DEPAKENE [Concomitant]
     Active Substance: VALPROIC ACID
     Indication: Severe myoclonic epilepsy of infancy
     Dosage: 320 MILLIGRAM, ONCE DAILY (QD)
     Route: 048
  6. DEPAKENE [Concomitant]
     Active Substance: VALPROIC ACID
     Dosage: 240 MILLIGRAM
     Route: 048
  7. DEPAKENE [Concomitant]
     Active Substance: VALPROIC ACID
     Dosage: 160 MILLIGRAM, ONCE DAILY (QD)
     Route: 048
  8. CLOBAZAM [Concomitant]
     Active Substance: CLOBAZAM
     Indication: Product used for unknown indication
     Dosage: UNK
  9. LEVOCARNITINE [Concomitant]
     Active Substance: LEVOCARNITINE
     Indication: Prophylaxis
     Route: 048
     Dates: end: 20231029

REACTIONS (2)
  - Epilepsy [Recovering/Resolving]
  - Off label use [Unknown]
